FAERS Safety Report 18060974 (Version 1)
Quarter: 2020Q3

REPORT INFORMATION
  Report Type: Spontaneous
  Country: CA (occurrence: CA)
  Receive Date: 20200723
  Receipt Date: 20200723
  Transmission Date: 20201103
  Serious: Yes (Other)
  Sender: FDA-Public Use
  Company Number: CA-SA-2020SA171856

PATIENT

DRUGS (1)
  1. ALLEGRA [Suspect]
     Active Substance: FEXOFENADINE HYDROCHLORIDE
     Dosage: UNK
     Route: 065

REACTIONS (11)
  - Nasal dryness [Unknown]
  - Throat irritation [Unknown]
  - Stevens-Johnson syndrome [Unknown]
  - Glossitis [Unknown]
  - Lip blister [Unknown]
  - Urticaria [Unknown]
  - Dry throat [Unknown]
  - Glossodynia [Unknown]
  - Skin exfoliation [Unknown]
  - Oropharyngeal pain [Unknown]
  - Adverse drug reaction [Unknown]
